FAERS Safety Report 8622897 (Version 4)
Quarter: 2018Q4

REPORT INFORMATION
  Report Type: Spontaneous
  Country: US (occurrence: US)
  Receive Date: 20120619
  Receipt Date: 20181003
  Transmission Date: 20190205
  Serious: No
  Sender: FDA-Public Use
  Company Number: US-ASTRAZENECA-2012SE37510

PATIENT
  Age: 705 Month
  Sex: Male
  Weight: 113.4 kg

DRUGS (14)
  1. CRESTOR [Suspect]
     Active Substance: ROSUVASTATIN CALCIUM
     Indication: HIGH DENSITY LIPOPROTEIN DECREASED
     Route: 048
     Dates: start: 20120402
  2. TUDORZA PRESSAIR [Suspect]
     Active Substance: ACLIDINIUM BROMIDE
     Indication: CHRONIC OBSTRUCTIVE PULMONARY DISEASE
     Dosage: 400 MCG, ONE INHALATION, TWICE DAILY
     Route: 055
  3. ASPIRIN. [Concomitant]
     Active Substance: ASPIRIN
     Dosage: 325.0MG UNKNOWN
  4. PLAVIX [Concomitant]
     Active Substance: CLOPIDOGREL BISULFATE
     Dosage: 75.0MG UNKNOWN
  5. ZOVIRAX [Concomitant]
     Active Substance: ACYCLOVIR
  6. PENTOPRAZOLE PROTONIX [Concomitant]
     Dosage: 20.0MG UNKNOWN
  7. EFFEXOR [Concomitant]
     Active Substance: VENLAFAXINE HYDROCHLORIDE
  8. PRIVINIL [Suspect]
     Active Substance: LISINOPRIL
     Route: 048
     Dates: start: 200402
  9. TOPROL XL [Suspect]
     Active Substance: METOPROLOL SUCCINATE
     Indication: CARDIAC DISORDER
     Route: 048
     Dates: start: 200402
  10. TUDORZA PRESSAIR [Suspect]
     Active Substance: ACLIDINIUM BROMIDE
     Indication: EMPHYSEMA
     Dosage: 400 MCG, ONE INHALATION, TWICE DAILY
     Route: 055
  11. OMEGA 3 FISH OIL [Concomitant]
     Active Substance: FISH OIL\OMEGA-3 FATTY ACIDS
  12. DULERA [Concomitant]
     Active Substance: FORMOTEROL FUMARATE DIHYDRATE\MOMETASONE FUROATE
     Indication: CHRONIC OBSTRUCTIVE PULMONARY DISEASE
     Dosage: 100 MCG/5 MCG TWICE A DAY ONE TO TWO INHALATIONS, DEPENDING ON HOW THE PATIENT IS BREATHING
     Route: 055
  13. TOPROL XL [Suspect]
     Active Substance: METOPROLOL SUCCINATE
     Indication: CARDIAC DISORDER
     Route: 048
  14. ACIDOPHILUS PROBIOTIC [Concomitant]
     Dosage: 175.0MG UNKNOWN

REACTIONS (14)
  - High density lipoprotein increased [Unknown]
  - Vision blurred [Not Recovered/Not Resolved]
  - Intentional product misuse [Unknown]
  - Blood cholesterol increased [Unknown]
  - Intentional product misuse [Not Recovered/Not Resolved]
  - Cataract [Not Recovered/Not Resolved]
  - Vitreous floaters [Not Recovered/Not Resolved]
  - Device malfunction [Unknown]
  - Dacryostenosis acquired [Not Recovered/Not Resolved]
  - Circumstance or information capable of leading to medication error [Not Recovered/Not Resolved]
  - Myopia [Not Recovered/Not Resolved]
  - Low density lipoprotein increased [Unknown]
  - Blood triglycerides increased [Unknown]
  - Intentional device misuse [Not Recovered/Not Resolved]

NARRATIVE: CASE EVENT DATE: 201204
